FAERS Safety Report 12272326 (Version 2)
Quarter: 2016Q2

REPORT INFORMATION
  Report Type: Spontaneous
  Country: JP (occurrence: JP)
  Receive Date: 20160415
  Receipt Date: 20160425
  Transmission Date: 20160815
  Serious: Yes (Hospitalization, Other)
  Sender: FDA-Public Use
  Company Number: JP-SA-2016SA074423

PATIENT
  Age: 50 Year
  Sex: Male

DRUGS (3)
  1. CISPLATIN. [Suspect]
     Active Substance: CISPLATIN
     Indication: OESOPHAGEAL CARCINOMA
     Dosage: ADMINISTERED ON DAY 1 EVERY 4 WEEKS CYCLE
     Route: 065
  2. FLUOROURACIL. [Suspect]
     Active Substance: FLUOROURACIL
     Indication: OESOPHAGEAL CARCINOMA
     Dosage: DAYS 1-5
     Route: 065
  3. DOCETAXEL. [Suspect]
     Active Substance: DOCETAXEL
     Indication: PROPHYLAXIS
     Dosage: 70 MG/M2 X 90% DOSE
     Route: 065

REACTIONS (9)
  - Mucosal necrosis [Recovered/Resolved]
  - Dyspnoea [Recovered/Resolved]
  - Necrosis [Recovered/Resolved]
  - Pyrexia [Recovered/Resolved]
  - Bronchoscopy abnormal [Recovered/Resolved]
  - Tracheal stenosis [Recovered/Resolved]
  - Cough [Recovered/Resolved]
  - Tracheal disorder [Recovered/Resolved]
  - Stridor [Recovered/Resolved]
